FAERS Safety Report 5916371-0 (Version None)
Quarter: 2008Q4

REPORT INFORMATION
  Report Type: 
  Country: None (occurrence: None)
  Receive Date: 20081013
  Receipt Date: 20081006
  Transmission Date: 20090506
  Serious: Yes (Other)
  Sender: FDA-Public Use
  Company Number: US-BAYER-200833131NA

PATIENT
  Age: 25 Year
  Sex: Female
  Weight: 74 kg

DRUGS (2)
  1. MIRENA [Suspect]
     Indication: CONTRACEPTION
     Route: 015
     Dates: start: 20080516, end: 20080709
  2. FEMCON FE [Concomitant]
     Indication: DRUG USE FOR UNKNOWN INDICATION

REACTIONS (3)
  - DYSPAREUNIA [None]
  - IUD MIGRATION [None]
  - PELVIC PAIN [None]
